FAERS Safety Report 20112013 (Version 1)
Quarter: 2021Q4

REPORT INFORMATION
  Report Type: Spontaneous
  Country: FR (occurrence: None)
  Receive Date: 20211125
  Receipt Date: 20211125
  Transmission Date: 20220303
  Serious: Yes (Other)
  Sender: FDA-Public Use
  Company Number: FR-ROCHE-2963390

PATIENT
  Age: 38 Year
  Sex: Female

DRUGS (1)
  1. RITUXIMAB [Suspect]
     Active Substance: RITUXIMAB
     Indication: Relapsing-remitting multiple sclerosis
     Route: 065
     Dates: start: 20011001, end: 20211018

REACTIONS (5)
  - Fatigue [Unknown]
  - Multiple sclerosis relapse [Unknown]
  - Investigation abnormal [Unknown]
  - Cognitive disorder [Unknown]
  - Drug ineffective [Unknown]
